FAERS Safety Report 9449224 (Version 2)
Quarter: 2013Q4

REPORT INFORMATION
  Report Type: Spontaneous
  Country: GB (occurrence: GB)
  Receive Date: 20130808
  Receipt Date: 20131204
  Transmission Date: 20140711
  Serious: Yes (Congenital Anomaly)
  Sender: FDA-Public Use
  Company Number: GB-ACTAVIS-2013-13958

PATIENT
  Sex: Female
  Weight: 3 kg

DRUGS (2)
  1. QUETIAPINE (UNKNOWN) [Suspect]
     Indication: BIPOLAR DISORDER
     Dosage: 300 MG, UNK, DATE STARTED DURING PREGNANCY, STOPPED 4 WEEKS BEFORE DELIVERY.
     Route: 064
  2. DIAZEPAM [Concomitant]
     Indication: PRODUCT USED FOR UNKNOWN INDICATION
     Dosage: 2 MG, TID
     Route: 065

REACTIONS (2)
  - Congenital hand malformation [Unknown]
  - Arthropathy [Unknown]
